FAERS Safety Report 20176817 (Version 9)
Quarter: 2023Q1

REPORT INFORMATION
  Report Type: Report from Study
  Country: US (occurrence: US)
  Receive Date: 20211213
  Receipt Date: 20230309
  Transmission Date: 20230417
  Serious: Yes (Other)
  Sender: FDA-Public Use
  Company Number: US-TAKEDA-2021TUS077847

PATIENT
  Sex: Female

DRUGS (2)
  1. BRIGATINIB [Suspect]
     Active Substance: BRIGATINIB
     Indication: Lung neoplasm malignant
     Dosage: UNK
     Route: 048
  2. BRIGATINIB [Suspect]
     Active Substance: BRIGATINIB
     Dosage: 180 MILLIGRAM, QD
     Route: 048
     Dates: start: 20211009

REACTIONS (24)
  - Cerebrovascular accident [Unknown]
  - Neoplasm [Unknown]
  - Drug interaction [Unknown]
  - Blood calcium decreased [Unknown]
  - Blood pressure abnormal [Recovering/Resolving]
  - Oxygen saturation abnormal [Recovering/Resolving]
  - COVID-19 [Unknown]
  - Sunburn [Recovered/Resolved]
  - Skin atrophy [Unknown]
  - Alopecia [Unknown]
  - Haemoptysis [Recovered/Resolved]
  - Extra dose administered [Unknown]
  - Blister [Unknown]
  - Palmar-plantar erythrodysaesthesia syndrome [Unknown]
  - Staphylococcal infection [Recovered/Resolved]
  - Gastrooesophageal reflux disease [Unknown]
  - Pruritus [Unknown]
  - Dry skin [Unknown]
  - Abdominal discomfort [Unknown]
  - Decreased appetite [Unknown]
  - Memory impairment [Unknown]
  - Photosensitivity reaction [Recovered/Resolved]
  - Product dose omission issue [Unknown]
  - Intentional product misuse [Unknown]
